FAERS Safety Report 18040209 (Version 1)
Quarter: 2020Q3

REPORT INFORMATION
  Report Type: Spontaneous
  Country: BR (occurrence: BR)
  Receive Date: 20200717
  Receipt Date: 20200717
  Transmission Date: 20201103
  Serious: Yes (Other)
  Sender: FDA-Public Use
  Company Number: NVSC2020BR196082

PATIENT
  Sex: Female

DRUGS (5)
  1. PURAN [Concomitant]
     Active Substance: LEVOTHYROXINE SODIUM
     Indication: PRODUCT USED FOR UNKNOWN INDICATION
     Dosage: UNK
     Route: 065
  2. DDAVP [Concomitant]
     Active Substance: DESMOPRESSIN ACETATE
     Indication: PRODUCT USED FOR UNKNOWN INDICATION
     Route: 065
  3. OMEPRAZOLE. [Concomitant]
     Active Substance: OMEPRAZOLE
     Indication: PRODUCT USED FOR UNKNOWN INDICATION
     Dosage: UNK
     Route: 065
     Dates: start: 20200507
  4. MEKINIST [Suspect]
     Active Substance: TRAMETINIB DIMETHYL SULFOXIDE
     Indication: PRODUCT USED FOR UNKNOWN INDICATION
     Dosage: UNK
     Route: 065
     Dates: start: 20190107, end: 20200507
  5. LUPRON [Concomitant]
     Active Substance: LEUPROLIDE ACETATE
     Indication: PRODUCT USED FOR UNKNOWN INDICATION
     Dosage: UNK
     Route: 065

REACTIONS (11)
  - Shock [Unknown]
  - Systemic inflammatory response syndrome [Unknown]
  - Somnolence [Unknown]
  - Toxicity to various agents [Unknown]
  - Septic shock [Unknown]
  - Dermatitis exfoliative generalised [Unknown]
  - Rash erythematous [Unknown]
  - Sinus bradycardia [Unknown]
  - Respiratory symptom [Unknown]
  - Headache [Unknown]
  - Impetigo [Unknown]

NARRATIVE: CASE EVENT DATE: 20200507
